FAERS Safety Report 6520335-6 (Version None)
Quarter: 2009Q4

REPORT INFORMATION
  Report Type: 
  Country: None (occurrence: None)
  Receive Date: 20091229
  Receipt Date: 20091221
  Transmission Date: 20100525
  Serious: Yes (Other)
  Sender: FDA-Public Use
  Company Number: US-AMGEN-QUU381671

PATIENT
  Sex: Male

DRUGS (2)
  1. ARANESP [Suspect]
     Indication: RENAL FAILURE CHRONIC
  2. FACTOR IX ^BEHRING^ [Concomitant]

REACTIONS (3)
  - HYPERSENSITIVITY [None]
  - PAIN [None]
  - PRURITUS ALLERGIC [None]
